FAERS Safety Report 6318403-7 (Version None)
Quarter: 2009Q3

REPORT INFORMATION
  Report Type: 
  Country: None (occurrence: None)
  Receive Date: 20090821
  Receipt Date: 20090817
  Transmission Date: 20100115
  Serious: Yes (Death, Hospitalization, Other)
  Sender: FDA-Public Use
  Company Number: DE-CELGENEUS-062-50794-09070380

PATIENT
  Sex: Male
  Weight: 74 kg

DRUGS (6)
  1. VIDAZA [Suspect]
     Indication: DRUG USE FOR UNKNOWN INDICATION
     Route: 058
  2. FUROSEMIDE [Concomitant]
     Route: 065
     Dates: start: 20080101, end: 20090606
  3. TRIAMTERENE AND HYDROCHLOROTHIAZIDE [Concomitant]
     Route: 065
     Dates: start: 20070101, end: 20090606
  4. TAVANIC [Concomitant]
     Indication: FEBRILE INFECTION
     Route: 065
     Dates: start: 20090519, end: 20090606
  5. ENALAPRIL MALEATE [Concomitant]
     Route: 065
     Dates: start: 20060101, end: 20090606
  6. NOVALGIN [Concomitant]
     Route: 048
     Dates: start: 20090508, end: 20090606

REACTIONS (3)
  - ACUTE MYELOID LEUKAEMIA [None]
  - PANCYTOPENIA [None]
  - PNEUMONIA [None]
